FAERS Safety Report 6703291-7 (Version None)
Quarter: 2010Q2

REPORT INFORMATION
  Report Type: 
  Country: None (occurrence: None)
  Receive Date: 20100430
  Receipt Date: 20100422
  Transmission Date: 20101027
  Serious: Yes (Other)
  Sender: FDA-Public Use
  Company Number: US-JNJFOC-20100405972

PATIENT
  Age: 45 Year
  Sex: Male

DRUGS (5)
  1. SIMPONI [Suspect]
     Indication: ANKYLOSING SPONDYLITIS
     Route: 058
  2. ULORIC [Concomitant]
  3. LISINOPRIL [Concomitant]
  4. PRILOSEC [Concomitant]
  5. TYLENOL-500 [Concomitant]

REACTIONS (1)
  - MALIGNANT MELANOMA [None]
